FAERS Safety Report 7000661-7 (Version None)
Quarter: 2010Q3

REPORT INFORMATION
  Report Type: 
  Country: None (occurrence: None)
  Receive Date: 20100920
  Receipt Date: 20100201
  Transmission Date: 20110219
  Serious: No
  Sender: FDA-Public Use
  Company Number: US-ASTRAZENECA-2010SE04554

PATIENT
  Age: 40 Year
  Sex: Female
  Weight: 56.2 kg

DRUGS (2)
  1. SEROQUEL [Suspect]
     Indication: BIPOLAR DISORDER
     Route: 048
     Dates: start: 20050101, end: 20100101
  2. LITHIUM [Concomitant]

REACTIONS (4)
  - DIABETES INSIPIDUS [None]
  - LETHARGY [None]
  - SOMNOLENCE [None]
  - TREMOR [None]
